FAERS Safety Report 13565741 (Version 2)
Quarter: 2017Q2

REPORT INFORMATION
  Report Type: Spontaneous
  Country: FR (occurrence: FR)
  Receive Date: 20170520
  Receipt Date: 20170601
  Transmission Date: 20170830
  Serious: Yes (Hospitalization, Disabling, Congenital Anomaly)
  Sender: FDA-Public Use
  Company Number: FR-ABBVIE-15P-056-1432033-00

PATIENT
  Sex: Female

DRUGS (1)
  1. DEPAKINE CHRONO [Suspect]
     Active Substance: VALPROATE SODIUM
     Indication: MATERNAL EXPOSURE TIMING UNSPECIFIED
     Route: 064

REACTIONS (14)
  - Attention deficit/hyperactivity disorder [Unknown]
  - Social problem [Unknown]
  - Ear infection [Unknown]
  - Learning disorder [Unknown]
  - Speech disorder [Unknown]
  - Head deformity [Unknown]
  - Foetal exposure during pregnancy [Unknown]
  - Hypotonia [Unknown]
  - Bronchiolitis [Unknown]
  - Facial asymmetry [Unknown]
  - Abnormal behaviour [Not Recovered/Not Resolved]
  - Executive dysfunction [Unknown]
  - Exposure during breast feeding [Unknown]
  - Dysmorphism [Unknown]

NARRATIVE: CASE EVENT DATE: 2007
